FAERS Safety Report 24576374 (Version 2)
Quarter: 2025Q1

REPORT INFORMATION
  Report Type: Spontaneous
  Country: US (occurrence: US)
  Receive Date: 20241104
  Receipt Date: 20250305
  Transmission Date: 20250408
  Serious: No
  Sender: PFIZER
  Company Number: US-PFIZER INC-PV202400140540

PATIENT
  Sex: Female

DRUGS (5)
  1. TUKYSA [Suspect]
     Active Substance: TUCATINIB
     Dosage: 150MG TABLET 2 TABLETS TWICE DAILY
     Route: 048
  2. TAXOTERE [Suspect]
     Active Substance: DOCETAXEL
  3. PERJETA [Suspect]
     Active Substance: PERTUZUMAB
  4. CAPECITABINE [Suspect]
     Active Substance: CAPECITABINE
  5. HERCEPTIN [Suspect]
     Active Substance: TRASTUZUMAB

REACTIONS (3)
  - Diarrhoea [Unknown]
  - Brain fog [Recovering/Resolving]
  - Tinnitus [Recovering/Resolving]
